FAERS Safety Report 6022338-7 (Version None)
Quarter: 2008Q4

REPORT INFORMATION
  Report Type: 
  Country: None (occurrence: None)
  Receive Date: 20081221
  Receipt Date: 20081221
  Transmission Date: 20090506
  Serious: No
  Sender: FDA-Public Use
  Company Number: None

PATIENT
  Age: 25 Year
  Sex: Female
  Weight: 65.7716 kg

DRUGS (1)
  1. KENALOG-40 [Suspect]
     Indication: PHARYNGITIS
     Dosage: 40MG 1 IM
     Route: 030
     Dates: start: 20081212, end: 20081212

REACTIONS (1)
  - MENSTRUAL DISORDER [None]
